FAERS Safety Report 15190955 (Version 3)
Quarter: 2020Q1

REPORT INFORMATION
  Report Type: Report from Study
  Country: US (occurrence: US)
  Receive Date: 20180724
  Receipt Date: 20200227
  Transmission Date: 20200409
  Serious: Yes (Death, Hospitalization, Other)
  Sender: FDA-Public Use
  Company Number: US-SA-2016SA139901

PATIENT
  Age: 51 Year
  Sex: Male
  Weight: 63.5 kg

DRUGS (3)
  1. AGALSIDASE BETA [Suspect]
     Active Substance: AGALSIDASE BETA
     Dosage: 65 MG, QOW
     Route: 042
     Dates: start: 201804
  2. AGALSIDASE BETA [Suspect]
     Active Substance: AGALSIDASE BETA
     Indication: FABRY^S DISEASE
     Dosage: 65 MG, QOW
     Route: 041
     Dates: start: 20050210, end: 20111104
  3. AGALSIDASE BETA [Suspect]
     Active Substance: AGALSIDASE BETA
     Dosage: DOSE: 70.00 FREQUENCY:Q2
     Route: 041
     Dates: start: 20170130

REACTIONS (12)
  - International normalised ratio increased [Recovering/Resolving]
  - End stage renal disease [Not Recovered/Not Resolved]
  - Loss of personal independence in daily activities [Not Recovered/Not Resolved]
  - Neurological symptom [Recovered/Resolved]
  - Hospitalisation [Unknown]
  - Transient ischaemic attack [Not Recovered/Not Resolved]
  - Death [Fatal]
  - Catheter placement [Not Recovered/Not Resolved]
  - Arthropathy [Recovering/Resolving]
  - Asthenia [Not Recovered/Not Resolved]
  - Oedema [Not Recovered/Not Resolved]
  - Haemorrhage [Recovering/Resolving]

NARRATIVE: CASE EVENT DATE: 201607
